FAERS Safety Report 11086492 (Version 1)
Quarter: 2015Q2

REPORT INFORMATION
  Report Type: Spontaneous
  Country: US (occurrence: US)
  Receive Date: 20150504
  Receipt Date: 20150504
  Transmission Date: 20150821
  Serious: No
  Sender: FDA-Public Use
  Company Number: US-TEVA-508981USA

PATIENT
  Sex: Male

DRUGS (13)
  1. ZOLPIDEM [Suspect]
     Active Substance: ZOLPIDEM\ZOLPIDEM TARTRATE
     Indication: SLEEP DISORDER
     Dosage: 10 MILLIGRAM DAILY;
     Route: 048
     Dates: start: 2014, end: 2014
  2. COENZYME Q10 [Concomitant]
     Active Substance: UBIDECARENONE
  3. ANTHISTAMINE [Concomitant]
  4. L-THYROXINE [Concomitant]
     Active Substance: LEVOTHYROXINE
  5. OMEPRAZOLE. [Concomitant]
     Active Substance: OMEPRAZOLE
  6. SIMVASTATIN. [Concomitant]
     Active Substance: SIMVASTATIN
  7. NITROSTAT [Concomitant]
     Active Substance: NITROGLYCERIN
     Dosage: AS NEEDED
  8. ASPIRIN. [Concomitant]
     Active Substance: ASPIRIN
  9. NABUMETONE. [Concomitant]
     Active Substance: NABUMETONE
  10. LISINOPRIL. [Concomitant]
     Active Substance: LISINOPRIL
  11. HYDROCODONE [Concomitant]
     Active Substance: HYDROCODONE
     Dosage: AS NEEDED
  12. METOPROLOL [Concomitant]
     Active Substance: METOPROLOL
  13. VITAMIN B COMPLEX [Concomitant]
     Active Substance: CYANOCOBALAMIN\DEXPANTHENOL\NIACINAMIDE\PYRIDOXINE HYDROCHLORIDE\RIBOFLAVIN 5^-PHOSPHATE SODIUM\THIAMINE HYDROCHLORIDE\VITAMIN B COMPLEX

REACTIONS (4)
  - Insomnia [Recovered/Resolved]
  - Activities of daily living impaired [Recovered/Resolved]
  - Drug ineffective [Unknown]
  - Product quality issue [Unknown]

NARRATIVE: CASE EVENT DATE: 2014
